FAERS Safety Report 10185517 (Version 2)
Quarter: 2014Q4

REPORT INFORMATION
  Report Type: Spontaneous
  Country: DK (occurrence: DK)
  Receive Date: 20140521
  Receipt Date: 20141029
  Transmission Date: 20150528
  Serious: Yes (Life-Threatening, Hospitalization)
  Sender: FDA-Public Use
  Company Number: DK-SA-2014SA061181

PATIENT
  Age: 25 Year
  Sex: Male

DRUGS (1)
  1. AUBAGIO [Suspect]
     Active Substance: TERIFLUNOMIDE
     Indication: MULTIPLE SCLEROSIS
     Dosage: STYRKE: 14 MG
     Route: 048
     Dates: start: 20140319, end: 20140429

REACTIONS (10)
  - Muscle spasms [Recovered/Resolved]
  - Electrolyte imbalance [Recovered/Resolved]
  - Disseminated intravascular coagulation [Recovered/Resolved]
  - Pneumonia aspiration [Recovered/Resolved]
  - Dehydration [Recovered/Resolved]
  - Aspiration [Recovered/Resolved]
  - Rhabdomyolysis [Recovered/Resolved]
  - Altered state of consciousness [Recovered/Resolved]
  - Gastritis [Recovered/Resolved]
  - Heat stroke [Recovered/Resolved]

NARRATIVE: CASE EVENT DATE: 20140427
